FAERS Safety Report 7167115-9 (Version None)
Quarter: 2010Q4

REPORT INFORMATION
  Report Type: 
  Country: None (occurrence: None)
  Receive Date: 20101202
  Receipt Date: 20101124
  Transmission Date: 20110411
  Serious: Yes (Hospitalization)
  Sender: FDA-Public Use
  Company Number: TPA2010A05713

PATIENT
  Age: 57 Year
  Sex: Male

DRUGS (2)
  1. DEXILANT (DEXLANSOPRAZOLE) [Suspect]
     Indication: GASTROOESOPHAGEAL REFLUX DISEASE
     Dates: start: 20101001
  2. TRAZODONE (TRAZODONE) [Suspect]
     Indication: SLEEP DISORDER
     Dosage: 400 MG, HS, QUITE A WHILE

REACTIONS (6)
  - CONDITION AGGRAVATED [None]
  - CONTUSION [None]
  - ISCHAEMIA [None]
  - OEDEMA [None]
  - PAIN [None]
  - PRIAPISM [None]
